FAERS Safety Report 6875836-8 (Version None)
Quarter: 2010Q3

REPORT INFORMATION
  Report Type: 
  Country: None (occurrence: None)
  Receive Date: 20100727
  Receipt Date: 20070702
  Transmission Date: 20110219
  Serious: Yes (Death, Hospitalization, Other)
  Sender: FDA-Public Use
  Company Number: US-PFIZER INC-2006150168

PATIENT
  Sex: Female
  Weight: 59 kg

DRUGS (12)
  1. CELEBREX [Suspect]
     Indication: RHEUMATOID ARTHRITIS
     Route: 048
     Dates: start: 20000801, end: 20050907
  2. CELEBREX [Suspect]
     Indication: PAIN
  3. VIOXX [Suspect]
     Indication: PAIN
     Route: 048
     Dates: start: 19990501, end: 20040930
  4. VIOXX [Suspect]
     Indication: RHEUMATOID ARTHRITIS
  5. ARTHROTEC [Concomitant]
     Indication: ARTHRITIS
     Dates: start: 20030930, end: 20040930
  6. FERROUS SULFATE [Concomitant]
     Indication: IRON DEFICIENCY
  7. FUROSEMIDE [Concomitant]
     Indication: FLUID RETENTION
  8. METOPROLOL SUCCINATE [Concomitant]
     Indication: HYPERTENSION
  9. POTASSIUM CHLORIDE [Concomitant]
     Indication: HYPOKALAEMIA
  10. PRINIVIL [Concomitant]
     Indication: HYPERTENSION
  11. PROPYLTHIOURACIL [Concomitant]
     Indication: HYPERTHYROIDISM
  12. ZESTRIL [Concomitant]
     Indication: HYPERTENSION

REACTIONS (2)
  - CEREBROVASCULAR ACCIDENT [None]
  - TRANSIENT ISCHAEMIC ATTACK [None]
